FAERS Safety Report 24450334 (Version 1)
Quarter: 2024Q4

REPORT INFORMATION
  Report Type: Spontaneous
  Country: US (occurrence: None)
  Receive Date: 20241016
  Receipt Date: 20241016
  Transmission Date: 20250115
  Serious: Yes (unspecified)
  Sender: Public
  Company Number: None

PATIENT
  Age: 73 Year
  Sex: Male

DRUGS (1)
  1. LENALIDOMIDE [Suspect]
     Active Substance: LENALIDOMIDE
     Indication: Plasma cell myeloma
     Dosage: FREQUENCY : DAILY;?
     Route: 048
     Dates: start: 20190114, end: 20240723

REACTIONS (3)
  - Neuropathy peripheral [None]
  - Dysphonia [None]
  - Asthenia [None]

NARRATIVE: CASE EVENT DATE: 20240723
